FAERS Safety Report 16475106 (Version 2)
Quarter: 2019Q3

REPORT INFORMATION
  Report Type: Spontaneous
  Country: DE (occurrence: DE)
  Receive Date: 20190625
  Receipt Date: 20190703
  Transmission Date: 20191004
  Serious: Yes (Hospitalization, Other)
  Sender: FDA-Public Use
  Company Number: DE-009507513-1904DEU006641

PATIENT
  Age: 71 Year
  Sex: Female
  Weight: 71 kg

DRUGS (4)
  1. L-THYROXIN [Concomitant]
     Active Substance: LEVOTHYROXINE SODIUM
     Dosage: UNK
  2. VALSACOR [Concomitant]
     Active Substance: VALSARTAN
     Dosage: UNK
  3. PREDNISOLONE. [Concomitant]
     Active Substance: PREDNISOLONE
     Dosage: STARTED WITH 20 MG THREE WEEK TAPERING (TAPERING SCHEME: 10-9-8-7 AND SO ON)
  4. KEYTRUDA [Suspect]
     Active Substance: PEMBROLIZUMAB
     Indication: NON-SMALL CELL LUNG CANCER
     Dosage: 200 MILLIGRAM EVERY 3 WEEKS; 12 CYCLES
     Dates: start: 201805, end: 201903

REACTIONS (7)
  - Malignant neoplasm progression [Unknown]
  - Myalgia [Unknown]
  - Pruritus [Unknown]
  - Thyroid disorder [Unknown]
  - Pruritus generalised [Unknown]
  - Rash generalised [Unknown]
  - Muscle spasms [Unknown]

NARRATIVE: CASE EVENT DATE: 2019
